FAERS Safety Report 10079142 (Version 16)
Quarter: 2016Q4

REPORT INFORMATION
  Report Type: Report from Study
  Country: IQ (occurrence: IQ)
  Receive Date: 20140415
  Receipt Date: 20161123
  Transmission Date: 20170206
  Serious: No
  Sender: FDA-Public Use
  Company Number: PHHY2012IQ114611

PATIENT
  Age: 22 Year
  Sex: Female

DRUGS (3)
  1. INTERFERON ALFA NOS [Concomitant]
     Active Substance: INTERFERON ALFA-2A OR INTERFERON ALFA-2B
     Indication: PRODUCT USED FOR UNKNOWN INDICATION
     Route: 065
     Dates: start: 201503
  2. PONSTAN [Concomitant]
     Active Substance: MEFENAMIC ACID
     Indication: PRODUCT USED FOR UNKNOWN INDICATION
     Dosage: PRN, AS REQUIRED (SOS)
     Route: 048
  3. TASIGNA [Suspect]
     Active Substance: NILOTINIB
     Indication: CHRONIC MYELOID LEUKAEMIA
     Dosage: 800 MG, QD
     Route: 048
     Dates: start: 20121115, end: 201411

REACTIONS (20)
  - Polymerase chain reaction positive [Not Recovered/Not Resolved]
  - Anaemia [Not Recovered/Not Resolved]
  - Headache [Not Recovered/Not Resolved]
  - Fatigue [Not Recovered/Not Resolved]
  - Alopecia [Not Recovered/Not Resolved]
  - Abdominal pain upper [Not Recovered/Not Resolved]
  - Rash [Not Recovered/Not Resolved]
  - Splenomegaly [Unknown]
  - Oedema peripheral [Not Recovered/Not Resolved]
  - Granuloma skin [Not Recovered/Not Resolved]
  - Psychological factor affecting medical condition [Recovering/Resolving]
  - Mouth ulceration [Not Recovered/Not Resolved]
  - Diarrhoea [Recovering/Resolving]
  - Influenza [Not Recovered/Not Resolved]
  - Incorrect dose administered [Unknown]
  - Weight increased [Not Recovered/Not Resolved]
  - Pyrexia [Not Recovered/Not Resolved]
  - Dizziness [Not Recovered/Not Resolved]
  - Anxiety [Not Recovered/Not Resolved]
  - Tachycardia [Not Recovered/Not Resolved]

NARRATIVE: CASE EVENT DATE: 201212
